FAERS Safety Report 22154070 (Version 1)
Quarter: 2023Q1

REPORT INFORMATION
  Report Type: Spontaneous
  Country: GB (occurrence: GB)
  Receive Date: 20230330
  Receipt Date: 20230330
  Transmission Date: 20230418
  Serious: Yes (Life-Threatening, Hospitalization, Other)
  Sender: FDA-Public Use
  Company Number: None

PATIENT
  Age: 67 Year

DRUGS (13)
  1. CLOPIDOGREL BISULFATE [Suspect]
     Active Substance: CLOPIDOGREL BISULFATE
     Dosage: 75MG IN THE MORNING
  2. WARFARIN SODIUM [Suspect]
     Active Substance: WARFARIN SODIUM
     Indication: Thrombosis
     Dosage: 2.5 MG
  3. WARFARIN SODIUM [Suspect]
     Active Substance: WARFARIN SODIUM
     Dosage: 3MG ON MONDAY AND FRIDAY
  4. WARFARIN SODIUM [Suspect]
     Active Substance: WARFARIN SODIUM
     Dosage: 4MG ON TUESDAY, WEDNESDAY, THURSDAY, SATURDAY AND SUNDAY
  5. ARIPIPRAZOLE [Concomitant]
     Active Substance: ARIPIPRAZOLE
     Dosage: 10MG IN THE MORNING
  6. ATORVASTATIN [Concomitant]
     Active Substance: ATORVASTATIN
     Dosage: 80MG AT NIGHT (HS)
  7. BISOPROLOL [Concomitant]
     Active Substance: BISOPROLOL
     Dosage: 5MG IN THE MORNING
  8. EPLERENONE [Concomitant]
     Active Substance: EPLERENONE
     Dosage: 50MG IN THE MORNING
  9. IVABRADINE [Concomitant]
     Active Substance: IVABRADINE
     Dosage: 2.5MG TWICE A DAY (M+N)
  10. LANSOPRAZOLE [Concomitant]
     Active Substance: LANSOPRAZOLE
     Dosage: 15MG IN THE MORNING
  11. RAMIPRIL [Concomitant]
     Active Substance: RAMIPRIL
     Dosage: 2.5MG AT HS
  12. SILDENAFIL [Concomitant]
     Active Substance: SILDENAFIL
     Dosage: 100 MG
  13. VENLAFAXINE [Concomitant]
     Active Substance: VENLAFAXINE HYDROCHLORIDE
     Dosage: 150MG IN THE MORNING

REACTIONS (1)
  - Cerebrovascular accident [Recovered/Resolved]
